FAERS Safety Report 22340239 (Version 1)
Quarter: 2023Q2

REPORT INFORMATION
  Report Type: Spontaneous
  Country: US (occurrence: None)
  Receive Date: 20230517
  Receipt Date: 20230517
  Transmission Date: 20230722
  Serious: Yes (Hospitalization)
  Sender: FDA-Public Use
  Company Number: None

PATIENT
  Sex: Male

DRUGS (2)
  1. OPSUMIT [Suspect]
     Active Substance: MACITENTAN
     Indication: Pulmonary arterial hypertension
     Dosage: FREQUENCY : DAILY;?
     Route: 048
     Dates: start: 202208
  2. TYVASO [Suspect]
     Active Substance: TREPROSTINIL

REACTIONS (5)
  - Fall [None]
  - Hip fracture [None]
  - Swelling [None]
  - Wound complication [None]
  - Full blood count decreased [None]
